FAERS Safety Report 9300681 (Version 3)
Quarter: 2013Q4

REPORT INFORMATION
  Report Type: Spontaneous
  Country: US (occurrence: None)
  Receive Date: 20130107
  Receipt Date: 20131226
  Transmission Date: 20140711
  Serious: Yes (Other)
  Sender: FDA-Public Use
  Company Number: PHEH2012US022015

PATIENT
  Age: 34 Year
  Sex: Female
  Weight: 64.9 kg

DRUGS (6)
  1. GILENYA [Suspect]
     Indication: MULTIPLE SCLEROSIS
     Route: 048
     Dates: start: 20121105
  2. ASMANEX (MOMETASONE FUROATE) 220 UG [Concomitant]
  3. LOESTRIN-FE 1/20 (ETHINYLESTRADIOL, GERROUS FUMARATE, NORETHISTERONE ACETATE) [Concomitant]
  4. OMEPRAZOLE (OMEPRAZOLE) [Concomitant]
  5. VIIBRYD (VILAZODONE HYDROCHLORIDE) [Concomitant]
  6. FLONASE (FLUTICASONE PROPIONATE) [Concomitant]

REACTIONS (5)
  - Depression [None]
  - Fatigue [None]
  - Hypoaesthesia [None]
  - Pain in extremity [None]
  - Paraesthesia [None]
